FAERS Safety Report 9587852 (Version 1)
Quarter: 2013Q4

REPORT INFORMATION
  Report Type: Report from Study
  Country: US (occurrence: US)
  Receive Date: 20131003
  Receipt Date: 20131003
  Transmission Date: 20140711
  Serious: No
  Sender: FDA-Public Use
  Company Number: US-ALEXION-A201301310

PATIENT
  Age: 10 Month
  Sex: Male

DRUGS (1)
  1. SOLIRIS 300MG [Suspect]
     Indication: HAEMOLYTIC URAEMIC SYNDROME
     Route: 042

REACTIONS (3)
  - Abdominal discomfort [Recovered/Resolved]
  - Crying [Recovered/Resolved]
  - Weight gain poor [Unknown]
